FAERS Safety Report 8816757 (Version 1)
Quarter: 2012Q4

REPORT INFORMATION
  Report Type: Spontaneous
  Country: US (occurrence: None)
  Receive Date: 20121001
  Receipt Date: 20121001
  Transmission Date: 20130627
  Serious: Yes (Hospitalization, Other)
  Sender: FDA-Public Use
  Company Number: JPI-P-025329

PATIENT
  Age: 51 Year
  Sex: Male

DRUGS (2)
  1. XYREM [Suspect]
     Indication: NARCOLEPSY
     Dosage: 4.5 gm (2.25 gm, 2 in 1 D), Oral
     Route: 048
     Dates: start: 20120418, end: 20120514
  2. XYREM [Suspect]
     Indication: NARCOLEPSY
     Dosage: 6 gm, (3 gm, 2 in 1 D), Oral
     Route: 048
     Dates: start: 20120515

REACTIONS (4)
  - Nephrolithiasis [None]
  - Cholecystectomy [None]
  - Muscle strain [None]
  - Chest pain [None]
